FAERS Safety Report 16925786 (Version 1)
Quarter: 2019Q4

REPORT INFORMATION
  Report Type: Spontaneous
  Country: US (occurrence: US)
  Receive Date: 20191016
  Receipt Date: 20191016
  Transmission Date: 20200122
  Serious: No
  Sender: FDA-Public Use
  Company Number: US-PINE PHARMACEUTICALS, LLC-2075711

PATIENT
  Age: 68 Year

DRUGS (1)
  1. BEVACIZUMAB. [Suspect]
     Active Substance: BEVACIZUMAB

REACTIONS (1)
  - Vitreous floaters [Recovered/Resolved with Sequelae]

NARRATIVE: CASE EVENT DATE: 20190926
